FAERS Safety Report 10073659 (Version 4)
Quarter: 2014Q2

REPORT INFORMATION
  Report Type: Spontaneous
  Country: US (occurrence: US)
  Receive Date: 20140411
  Receipt Date: 20140527
  Transmission Date: 20141212
  Serious: No
  Sender: FDA-Public Use
  Company Number: US-PFIZER INC-2014100314

PATIENT
  Age: 65 Year
  Sex: Female
  Weight: 76.19 kg

DRUGS (6)
  1. LYRICA [Suspect]
     Indication: FIBROMYALGIA
     Dosage: 150 MG, 2X/DAY
     Route: 048
     Dates: start: 20070907
  2. LYRICA [Suspect]
     Indication: OSTEOPOROSIS
  3. LYRICA [Suspect]
     Indication: BRAIN CONTUSION
  4. LYRICA [Suspect]
     Indication: HEADACHE
  5. LYRICA [Suspect]
     Indication: MYALGIA
  6. LYRICA [Suspect]
     Indication: MYOSITIS

REACTIONS (3)
  - Off label use [Unknown]
  - Therapeutic response changed [Unknown]
  - Pre-existing condition improved [Unknown]
